FAERS Safety Report 17646339 (Version 1)
Quarter: 2020Q2

REPORT INFORMATION
  Report Type: Spontaneous
  Country: HU (occurrence: HU)
  Receive Date: 20200408
  Receipt Date: 20200408
  Transmission Date: 20200713
  Serious: Yes (Other)
  Sender: FDA-Public Use
  Company Number: NVSC2020HU092633

PATIENT
  Age: 55 Year
  Sex: Female
  Weight: 125 kg

DRUGS (12)
  1. ELTROMBOPAG [Suspect]
     Active Substance: ELTROMBOPAG
     Dosage: 25 MG
     Route: 065
  2. MEDROL [Concomitant]
     Active Substance: METHYLPREDNISOLONE
     Dosage: 16 MG
     Route: 065
  3. METHYLPREDISOLONE [Concomitant]
     Active Substance: METHYLPREDNISOLONE
     Indication: PLATELET COUNT DECREASED
     Dosage: HIGH DOSE
     Route: 065
  4. ELTROMBOPAG [Suspect]
     Active Substance: ELTROMBOPAG
     Dosage: 75 MG
     Route: 065
  5. METHYLPREDISOLONE [Concomitant]
     Active Substance: METHYLPREDNISOLONE
     Indication: HAEMORRHAGE
  6. IMMUNOGLOBULIN [Concomitant]
     Indication: PRODUCT USED FOR UNKNOWN INDICATION
     Dosage: HIGH DOSE ONCE
     Route: 065
  7. ELTROMBOPAG [Suspect]
     Active Substance: ELTROMBOPAG
     Indication: PRODUCT USED FOR UNKNOWN INDICATION
     Dosage: 50 MG
     Route: 065
  8. AZATHIOPRINE. [Suspect]
     Active Substance: AZATHIOPRINE
     Indication: PRODUCT USED FOR UNKNOWN INDICATION
     Dosage: 100 MG
     Route: 065
  9. RITUXIMAB. [Suspect]
     Active Substance: RITUXIMAB
     Indication: PRODUCT USED FOR UNKNOWN INDICATION
     Dosage: 100 MG
     Route: 065
  10. BUTIOL//DEXAMETHASONE [Concomitant]
     Active Substance: DEXAMETHASONE
     Indication: PRODUCT USED FOR UNKNOWN INDICATION
     Dosage: HIGH DOSE
     Route: 065
  11. MEDROL [Concomitant]
     Active Substance: METHYLPREDNISOLONE
     Indication: PRODUCT USED FOR UNKNOWN INDICATION
     Dosage: 64 MG
     Route: 065
  12. INSULIN [Concomitant]
     Active Substance: INSULIN NOS
     Indication: PRODUCT USED FOR UNKNOWN INDICATION
     Route: 065

REACTIONS (17)
  - Reflux gastritis [Unknown]
  - Haematoma [Unknown]
  - Conjunctival haemorrhage [Unknown]
  - Platelet disorder [Unknown]
  - Blood pressure fluctuation [Recovered/Resolved]
  - General physical health deterioration [Unknown]
  - Haemorrhage [Unknown]
  - Asthenia [Unknown]
  - Gastroenteritis viral [Unknown]
  - Blood glucose fluctuation [Unknown]
  - Autoimmune haemolytic anaemia [Recovering/Resolving]
  - Reticulocytosis [Unknown]
  - Platelet count increased [Recovered/Resolved]
  - Purpura [Unknown]
  - Thrombocytopenia [Recovered/Resolved]
  - Urinary tract infection [Unknown]
  - Chromaturia [Unknown]

NARRATIVE: CASE EVENT DATE: 201305
